FAERS Safety Report 14349745 (Version 2)
Quarter: 2018Q2

REPORT INFORMATION
  Report Type: Report from Study
  Country: DE (occurrence: DE)
  Receive Date: 20180104
  Receipt Date: 20180530
  Transmission Date: 20180711
  Serious: Yes (Other)
  Sender: FDA-Public Use
  Company Number: PHHY2017DE144820

PATIENT
  Sex: Male
  Weight: 64 kg

DRUGS (7)
  1. COSENTYX [Suspect]
     Active Substance: SECUKINUMAB
     Dosage: 150 MG, PER APPLICATION
     Route: 065
     Dates: start: 20170909
  2. COSENTYX [Suspect]
     Active Substance: SECUKINUMAB
     Dosage: 150 MG, PER APPLICATION
     Route: 065
     Dates: start: 20170825
  3. COSENTYX [Suspect]
     Active Substance: SECUKINUMAB
     Indication: PSORIATIC ARTHROPATHY
     Dosage: 150 MG, PER APPLICATION
     Route: 065
     Dates: start: 20170818
  4. COSENTYX [Suspect]
     Active Substance: SECUKINUMAB
     Dosage: 150 MG, PER APPLICATION
     Route: 065
     Dates: start: 20170902
  5. COSENTYX [Suspect]
     Active Substance: SECUKINUMAB
     Dosage: 150 MG, PER APPLICATION
     Route: 065
     Dates: start: 20170916
  6. IBUPROFEN. [Concomitant]
     Active Substance: IBUPROFEN
     Indication: PSORIATIC ARTHROPATHY
     Dosage: 400 MG, PRN
     Route: 048
     Dates: start: 2017
  7. DUAC ACNE [Concomitant]
     Indication: ACNE
     Dosage: UNK
     Route: 061
     Dates: start: 20171215

REACTIONS (1)
  - Respiratory tract infection [Recovered/Resolved]

NARRATIVE: CASE EVENT DATE: 20170825
